FAERS Safety Report 19752618 (Version 2)
Quarter: 2021Q3

REPORT INFORMATION
  Report Type: Spontaneous
  Country: US (occurrence: US)
  Receive Date: 20210826
  Receipt Date: 20210907
  Transmission Date: 20211014
  Serious: Yes (Hospitalization)
  Sender: FDA-Public Use
  Company Number: US-TEVA-2021-US-1944722

PATIENT
  Age: 75 Year
  Sex: Male

DRUGS (7)
  1. CALCITONIN [Suspect]
     Active Substance: CALCITONIN
     Indication: HYPERCALCAEMIA
     Dosage: TOTAL 7 DOSES
     Route: 065
  2. FUROSEMIDE. [Suspect]
     Active Substance: FUROSEMIDE
     Indication: HYPERCALCAEMIA
     Route: 065
  3. PREDNISONE. [Suspect]
     Active Substance: PREDNISONE
     Indication: HYPERCALCAEMIA
     Dosage: 60 MILLIGRAM DAILY;
     Route: 065
  4. ZOLEDRONIC ACID [Suspect]
     Active Substance: ZOLEDRONIC ACID
     Indication: HYPERCALCAEMIA
     Dosage: 4MG
     Route: 041
  5. VITAMIN?D [Suspect]
     Active Substance: VITAMIN D NOS
     Indication: DRUG ABUSE
     Dosage: 50000IU DAILY
     Route: 048
  6. VITAMIN?D [Suspect]
     Active Substance: VITAMIN D NOS
     Indication: OVERDOSE
     Dosage: 5000IU DAILY
     Route: 048
  7. NORMAL SALINE [Suspect]
     Active Substance: SODIUM CHLORIDE
     Indication: HYPERCALCAEMIA
     Dosage: 62 LITERS DAILY;
     Route: 042

REACTIONS (7)
  - Overdose [Unknown]
  - Rebound effect [Recovered/Resolved]
  - Toxicity to various agents [Unknown]
  - Drug abuse [Unknown]
  - Pancreatitis [Unknown]
  - Acute kidney injury [Recovered/Resolved]
  - Hypercalcaemia [Recovered/Resolved]
